FAERS Safety Report 16044570 (Version 2)
Quarter: 2019Q1

REPORT INFORMATION
  Report Type: Report from Study
  Country: None (occurrence: US)
  Receive Date: 20190306
  Receipt Date: 20190326
  Transmission Date: 20190418
  Serious: Yes (Hospitalization, Other)
  Sender: FDA-Public Use
  Company Number: US-ABBVIE-19S-163-2685987-00

PATIENT
  Age: 70 Year
  Sex: Female
  Weight: 71 kg

DRUGS (3)
  1. OXALIPLATIN. [Suspect]
     Active Substance: OXALIPLATIN
     Indication: PRODUCT USED FOR UNKNOWN INDICATION
     Dosage: REDUCED
     Route: 065
  2. FOLFIRINOX [Suspect]
     Active Substance: FLUOROURACIL\IRINOTECAN\LEUCOVORIN\OXALIPLATIN
     Indication: PRODUCT USED FOR UNKNOWN INDICATION
     Dosage: REDUCED
     Route: 065
  3. CREON [Suspect]
     Active Substance: PANCRELIPASE AMYLASE\PANCRELIPASE LIPASE\PANCRELIPASE PROTEASE
     Indication: PANCREATIC FAILURE
     Route: 048

REACTIONS (29)
  - Gastric disorder [Unknown]
  - Duodenal obstruction [Unknown]
  - Post procedural sepsis [Unknown]
  - Vascular device infection [Unknown]
  - Hyperbilirubinaemia [Unknown]
  - Gastrointestinal oedema [Unknown]
  - Pancreatic mass [Unknown]
  - Malaise [Unknown]
  - Neuropathy peripheral [Unknown]
  - Abdominal pain upper [Unknown]
  - Diarrhoea [Recovering/Resolving]
  - Adverse drug reaction [Unknown]
  - Device issue [Unknown]
  - Pyrexia [Unknown]
  - Diarrhoea [Recovered/Resolved]
  - Pancreatic cyst [Unknown]
  - Sepsis [Unknown]
  - Vomiting [Unknown]
  - Cholecystitis chronic [Unknown]
  - Haematoma infection [Unknown]
  - Nausea [Unknown]
  - Nephrolithiasis [Recovering/Resolving]
  - Small intestinal stenosis [Unknown]
  - Abdominal pain lower [Unknown]
  - Hepatic haematoma [Unknown]
  - Insomnia [Unknown]
  - Arterial haemorrhage [Unknown]
  - Pancreaticoduodenectomy [Unknown]
  - Liver abscess [Unknown]

NARRATIVE: CASE EVENT DATE: 20150510
